FAERS Safety Report 8373067-6 (Version None)
Quarter: 2012Q2

REPORT INFORMATION
  Report Type: 
  Country: None (occurrence: None)
  Receive Date: 20120521
  Receipt Date: 20120516
  Transmission Date: 20120825
  Serious: Yes (Hospitalization, Other)
  Sender: FDA-Public Use
  Company Number: PHHY2010US16035

PATIENT
  Sex: Female

DRUGS (13)
  1. VITAMIN D [Concomitant]
     Indication: BONE DISORDER
     Dosage: D32000, QD
     Route: 048
  2. METOPROLOL [Concomitant]
     Indication: BLOOD PRESSURE INCREASED
     Dosage: 25 MG, QD
     Route: 048
  3. CRESTOR [Concomitant]
     Indication: BLOOD CHOLESTEROL ABNORMAL
     Dosage: 5 MG, QD
  4. METOPROLOL TARTRATE [Concomitant]
     Indication: BLOOD PRESSURE INCREASED
     Dosage: 25 MG, QD
     Route: 048
  5. CALTRATE +D [Suspect]
  6. LORAZEPAM [Concomitant]
     Indication: MUSCLE SPASMS
     Dosage: 2 MG, QD
     Route: 048
  7. NEXIUM [Concomitant]
     Indication: GASTROOESOPHAGEAL REFLUX DISEASE
     Dosage: 40 MG, QD
     Route: 048
  8. VITAMIN D [Concomitant]
  9. RECLAST [Suspect]
     Indication: OSTEOPOROSIS
     Dosage: UNK UKN, UNK
     Route: 042
     Dates: start: 20090301
  10. PREDNISONE [Concomitant]
     Indication: PNEUMONIA
     Dosage: 5 MG, QD
     Route: 048
  11. BENTYL [Concomitant]
     Indication: GASTRIC DISORDER
     Dosage: 20 MG, TID
     Route: 048
  12. ACTONEL [Concomitant]
     Indication: OSTEOPOROSIS
     Dosage: UNK UKN, UNK
  13. AMLODIPINE BESYLATE [Concomitant]
     Indication: BLOOD PRESSURE INCREASED
     Dosage: 5 MG, QD

REACTIONS (13)
  - PAIN IN EXTREMITY [None]
  - LIGAMENT SPRAIN [None]
  - DYSPNOEA [None]
  - MALAISE [None]
  - IRRITABLE BOWEL SYNDROME [None]
  - DRY EYE [None]
  - CALCINOSIS [None]
  - MUSCULOSKELETAL PAIN [None]
  - PAIN [None]
  - MYALGIA [None]
  - EOSINOPHILIC PNEUMONIA CHRONIC [None]
  - CHEST PAIN [None]
  - MUSCULOSKELETAL DISCOMFORT [None]
